FAERS Safety Report 5223546-5 (Version None)
Quarter: 2007Q1

REPORT INFORMATION
  Report Type: 
  Country: None (occurrence: None)
  Receive Date: 20070125
  Receipt Date: 20070110
  Transmission Date: 20070707
  Serious: Yes (Death, Hospitalization)
  Sender: FDA-Public Use
  Company Number: 093

PATIENT
  Sex: Male
  Weight: 51.2565 kg

DRUGS (5)
  1. FAZACLO ODT [Suspect]
     Indication: AGITATION
     Dosage: 12.5 MG PO DAILY
     Route: 048
     Dates: start: 20070104, end: 20070107
  2. ABILIFY [Concomitant]
  3. DEPAKOTE [Concomitant]
  4. NEXIUM [Concomitant]
  5. MULTI-VITAMIN [Concomitant]

REACTIONS (2)
  - HYPOTENSION [None]
  - LOSS OF CONSCIOUSNESS [None]
